FAERS Safety Report 21165410 (Version 1)
Quarter: 2022Q3

REPORT INFORMATION
  Report Type: Spontaneous
  Country: US (occurrence: US)
  Receive Date: 20220803
  Receipt Date: 20220803
  Transmission Date: 20221026
  Serious: Yes (Hospitalization, Other)
  Sender: FDA-Public Use
  Company Number: None

PATIENT
  Age: 25 Year
  Sex: Male

DRUGS (2)
  1. COLCHICINE [Suspect]
     Active Substance: COLCHICINE
     Indication: Product used for unknown indication
     Route: 048
  2. FILGRASTIM [Concomitant]
     Active Substance: FILGRASTIM
     Indication: Thrombocytopenia
     Route: 065

REACTIONS (10)
  - Metabolic acidosis [Unknown]
  - Toxicity to various agents [Unknown]
  - Vomiting [Unknown]
  - Abdominal pain [Unknown]
  - Pancytopenia [Recovering/Resolving]
  - Myelosuppression [Recovering/Resolving]
  - Pneumothorax [Unknown]
  - Rhabdomyolysis [Unknown]
  - Alopecia [Unknown]
  - Intentional overdose [Unknown]
